FAERS Safety Report 4578276-X (Version None)
Quarter: 2005Q1

REPORT INFORMATION
  Report Type: 
  Country: None (occurrence: None)
  Receive Date: 20050209
  Receipt Date: 20050131
  Transmission Date: 20050727
  Serious: Yes (Hospitalization)
  Sender: FDA-Public Use
  Company Number: US-2005-001306

PATIENT
  Age: 46 Year
  Sex: Female

DRUGS (5)
  1. ULTRAVIST 370 [Suspect]
     Indication: CATHETERISATION CARDIAC
     Dosage: 190 ML, 1 DOSE, INTRA-ARTERIAL
     Route: 013
     Dates: start: 20050128, end: 20050128
  2. INSULIN [Concomitant]
  3. ASPIRIN [Concomitant]
  4. PLAVIX [Concomitant]
  5. ANTIHYPERTENSIVES [Concomitant]

REACTIONS (3)
  - DIALYSIS [None]
  - PANCREATITIS ACUTE [None]
  - POST PROCEDURAL COMPLICATION [None]
